FAERS Safety Report 5917215-3 (Version None)
Quarter: 2008Q4

REPORT INFORMATION
  Report Type: 
  Country: None (occurrence: None)
  Receive Date: 20081009
  Receipt Date: 20080924
  Transmission Date: 20090506
  Serious: Yes (Other)
  Sender: FDA-Public Use
  Company Number: ENTC2008-0319

PATIENT
  Age: 75 Year
  Sex: Male

DRUGS (4)
  1. STALEVO 100 [Suspect]
     Indication: PARKINSON'S DISEASE
     Dosage: 300/75/600 MG/ D
  2. COMTAN [Suspect]
     Indication: PARKINSON'S DISEASE
     Dosage: 600 MG
  3. LEVODOPA [Concomitant]
  4. CARBIDOPA [Concomitant]

REACTIONS (4)
  - COCCYDYNIA [None]
  - COLITIS [None]
  - COLON ADENOMA [None]
  - DRUG EFFECT DECREASED [None]
